FAERS Safety Report 22240795 (Version 1)
Quarter: 2023Q2

REPORT INFORMATION
  Report Type: Spontaneous
  Country: US (occurrence: US)
  Receive Date: 20230421
  Receipt Date: 20230421
  Transmission Date: 20230721
  Serious: Yes (Death, Hospitalization, Other)
  Sender: FDA-Public Use
  Company Number: US-APIL-2311957US

PATIENT
  Sex: Male

DRUGS (1)
  1. MORPHINE SULFATE [Suspect]
     Active Substance: MORPHINE SULFATE
     Indication: Product used for unknown indication
     Dosage: UNK
     Route: 042
     Dates: start: 2008, end: 2008

REACTIONS (8)
  - Death [Fatal]
  - Gastrointestinal disorder [Unknown]
  - Aggression [Recovered/Resolved]
  - Drug hypersensitivity [Unknown]
  - Hallucination [Recovered/Resolved]
  - Palpitations [Recovered/Resolved]
  - Abnormal behaviour [Recovered/Resolved]
  - Chest pain [Recovered/Resolved]

NARRATIVE: CASE EVENT DATE: 20080101
